FAERS Safety Report 12318725 (Version 2)
Quarter: 2016Q2

REPORT INFORMATION
  Report Type: Spontaneous
  Country: US (occurrence: US)
  Receive Date: 20160429
  Receipt Date: 20160429
  Transmission Date: 20160815
  Serious: No
  Sender: FDA-Public Use
  Company Number: GXBR2015US001458

PATIENT
  Sex: Male
  Weight: 76.19 kg

DRUGS (1)
  1. LORAZEPAM ACTAVIS 1MG [Suspect]
     Active Substance: LORAZEPAM
     Indication: ANXIETY
     Dosage: 0.5 MG (HALF OF A 1 MG,) QHS
     Route: 048

REACTIONS (1)
  - Somnolence [Unknown]
